FAERS Safety Report 12469572 (Version 1)
Quarter: 2016Q2

REPORT INFORMATION
  Report Type: Spontaneous
  Country: TR (occurrence: TR)
  Receive Date: 20160615
  Receipt Date: 20160615
  Transmission Date: 20160815
  Serious: Yes (Life-Threatening)
  Sender: FDA-Public Use
  Company Number: TR-GE HEALTHCARE MEDICAL DIAGNOSTICS-OMPQ-PR-1606S-0969

PATIENT
  Age: 57 Year
  Sex: Male
  Weight: 90 kg

DRUGS (2)
  1. OMNIPAQUE [Suspect]
     Active Substance: IOHEXOL
     Indication: DIAGNOSTIC PROCEDURE
  2. OMNIPAQUE [Suspect]
     Active Substance: IOHEXOL
     Indication: PRODUCT USED FOR UNKNOWN INDICATION
     Dosage: DOSE NOT REPORTED
     Route: 013
     Dates: start: 20160419, end: 20160419

REACTIONS (10)
  - Bradycardia [Recovered/Resolved]
  - Atrioventricular block [Recovered/Resolved]
  - Fear of death [Recovered/Resolved]
  - Chest discomfort [Recovered/Resolved]
  - Hypoaesthesia [Recovered/Resolved]
  - Abdominal discomfort [Recovered/Resolved]
  - Nausea [Recovered/Resolved]
  - Burning sensation [Recovered/Resolved]
  - Hypotension [Recovered/Resolved]
  - Speech disorder [Recovered/Resolved]

NARRATIVE: CASE EVENT DATE: 20160419
